FAERS Safety Report 4862657-0 (Version None)
Quarter: 2005Q4

REPORT INFORMATION
  Report Type: 
  Country: None (occurrence: None)
  Receive Date: 20051219
  Receipt Date: 20051219
  Transmission Date: 20060501
  Serious: Yes (Disabling)
  Sender: FDA-Public Use
  Company Number: None

PATIENT
  Age: 36 Year
  Sex: Female
  Weight: 96.1 kg

DRUGS (1)
  1. HYDROCODONE/ACETAMINOPHE   7.5/500MG     MALLINCKRODT [Suspect]
     Indication: PAIN MANAGEMENT
     Dosage: 1 TABLET   EVERY 3 HOURS PRN   PO
     Route: 048
     Dates: start: 20051215, end: 20051215

REACTIONS (1)
  - PRURITUS [None]
